FAERS Safety Report 4863066-0 (Version None)
Quarter: 2005Q4

REPORT INFORMATION
  Report Type: 
  Country: None (occurrence: None)
  Receive Date: 20051219
  Receipt Date: 20051208
  Transmission Date: 20060501
  Serious: No
  Sender: FDA-Public Use
  Company Number: COV2-2005-00259

PATIENT
  Sex: Female
  Weight: 67.5 kg

DRUGS (10)
  1. FOSRENOL [Suspect]
     Indication: HYPERPHOSPHATAEMIA
     Dosage: 500 MG, 3X/DAY; TID, ORAL
     Route: 048
     Dates: start: 20050523, end: 20050426
  2. TIAZAC [Concomitant]
  3. TIAZAC [Concomitant]
  4. NEURONTIN [Concomitant]
  5. CATAPRES-TTS-2 (CLONIDINE) [Concomitant]
  6. SYNTHROID [Concomitant]
  7. IBUPROFEN [Concomitant]
  8. EPOGEN [Concomitant]
  9. HECTOROL [Concomitant]
  10. REGLAN /USA/ [Concomitant]

REACTIONS (1)
  - DIARRHOEA [None]
